FAERS Safety Report 10442138 (Version 2)
Quarter: 2014Q3

REPORT INFORMATION
  Report Type: Report from Study
  Country: CO (occurrence: CO)
  Receive Date: 20140909
  Receipt Date: 20140909
  Transmission Date: 20150326
  Serious: Yes (Hospitalization)
  Sender: FDA-Public Use
  Company Number: CO-BRISTOL-MYERS SQUIBB COMPANY-20298691

PATIENT
  Age: 47 Year
  Sex: Female

DRUGS (2)
  1. CAPECITABINE [Suspect]
     Active Substance: CAPECITABINE
  2. IXEMPRA [Suspect]
     Active Substance: IXABEPILONE
     Indication: BREAST CANCER METASTATIC
     Dosage: LAST CYCLE ON 03FEB14?INTERRUPTED ON 19FEB14,01AUG14?LAST DOSE:11JUL14
     Route: 042
     Dates: start: 20130613

REACTIONS (6)
  - Abdominal pain [Unknown]
  - Cholelithiasis [Unknown]
  - Malaise [Unknown]
  - Vomiting [Unknown]
  - Neuropathy peripheral [Unknown]
  - Liver disorder [Unknown]

NARRATIVE: CASE EVENT DATE: 2014
